FAERS Safety Report 8968178 (Version 1)
Quarter: 2012Q4

REPORT INFORMATION
  Report Type: 
  Country: DK (occurrence: DK)
  Receive Date: 20121218
  Receipt Date: 20121218
  Transmission Date: 20130627
  Serious: Yes (Disabling)
  Sender: FDA-Public Use
  Company Number: -SANOFI-AVENTIS-2012SA090181

PATIENT
  Age: 74 Year
  Sex: Male

DRUGS (4)
  1. PLAVIX [Suspect]
     Indication: THROMBOSIS PROPHYLAXIS
     Route: 065
     Dates: start: 201008
  2. WARFARIN [Concomitant]
  3. MAGNYL ^SAD^ [Concomitant]
  4. CORDARONE [Concomitant]

REACTIONS (7)
  - Spinal haematoma [Recovered/Resolved]
  - Diplegia [Not Recovered/Not Resolved]
  - Urinary incontinence [Not Recovered/Not Resolved]
  - Faecal incontinence [Not Recovered/Not Resolved]
  - Sensory disturbance [Unknown]
  - Hypoaesthesia [Unknown]
  - Back pain [Unknown]
